FAERS Safety Report 7673098-5 (Version None)
Quarter: 2011Q3

REPORT INFORMATION
  Report Type: 
  Country: None (occurrence: None)
  Receive Date: 20110810
  Receipt Date: 20110802
  Transmission Date: 20111222
  Serious: Yes (Hospitalization)
  Sender: FDA-Public Use
  Company Number: US-BIOGENIDEC-2010BI044030

PATIENT
  Age: 54 Year
  Sex: Female

DRUGS (1)
  1. AVONEX [Suspect]
     Indication: MULTIPLE SCLEROSIS
     Route: 030
     Dates: start: 20090601, end: 20100401

REACTIONS (11)
  - INFECTED CYST [None]
  - SEPSIS [None]
  - DIABETES MELLITUS [None]
  - DYSPEPSIA [None]
  - CHOLELITHIASIS [None]
  - RED BLOOD CELL COUNT DECREASED [None]
  - ABASIA [None]
  - PANCREATITIS [None]
  - APHAGIA [None]
  - DYSPNOEA [None]
  - PANCREATIC DISORDER [None]
